FAERS Safety Report 11595662 (Version 1)
Quarter: 2015Q4

REPORT INFORMATION
  Report Type: Spontaneous
  Country: US (occurrence: None)
  Receive Date: 20151005
  Receipt Date: 20151005
  Transmission Date: 20160304
  Serious: Yes (Other)
  Sender: FDA-Public Use
  Company Number: None

PATIENT
  Age: 61 Year
  Sex: Female

DRUGS (2)
  1. SENSORCAINE MPF [Suspect]
     Active Substance: BUPIVACAINE HYDROCHLORIDE
     Indication: VITRECTOMY
  2. XYLOCAINE-MPF [Suspect]
     Active Substance: LIDOCAINE HYDROCHLORIDE
     Indication: VITRECTOMY

REACTIONS (6)
  - Procedural pain [None]
  - Grimacing [None]
  - Tearfulness [None]
  - Restlessness [None]
  - Eye pain [None]
  - Product quality issue [None]

NARRATIVE: CASE EVENT DATE: 20151001
